FAERS Safety Report 24033309 (Version 1)
Quarter: 2024Q3

REPORT INFORMATION
  Report Type: Report from Study
  Country: IN (occurrence: IN)
  Receive Date: 20240701
  Receipt Date: 20240701
  Transmission Date: 20241017
  Serious: Yes (Death)
  Sender: ROCHE
  Company Number: IN-ROCHE-10000011643

PATIENT
  Age: 64 Year
  Sex: Female

DRUGS (1)
  1. TECENTRIQ [Suspect]
     Active Substance: ATEZOLIZUMAB
     Indication: Hepatocellular carcinoma
     Route: 042
     Dates: start: 20240306

REACTIONS (5)
  - Renal disorder [Fatal]
  - Oxygen saturation decreased [Fatal]
  - Decreased appetite [Unknown]
  - Diarrhoea [Unknown]
  - Hypertension [Unknown]
